FAERS Safety Report 9248854 (Version 1)
Quarter: 2013Q1

REPORT INFORMATION
  Report Type: Spontaneous
  Country: US (occurrence: None)
  Receive Date: 20130305
  Receipt Date: 20130305
  Transmission Date: 20140127
  Serious: Yes (Other)
  Sender: FDA-Public Use
  Company Number: 163-21880-12091763

PATIENT
  Age: 80 Year
  Sex: Female

DRUGS (8)
  1. REVLIMID [Suspect]
     Indication: MYELODYSPLASTIC SYNDROME
     Dosage: 1 IN 1 D
     Route: 048
     Dates: start: 20120730
  2. MELOXICAM [Concomitant]
  3. PRAVASTATIN [Concomitant]
     Route: 048
     Dates: start: 20120730
  4. GLIPIZIDE [Concomitant]
  5. AMLODIPINE [Concomitant]
  6. METFORMIN [Concomitant]
  7. ALENDRONATE [Concomitant]
  8. OMEPRAZOLE [Concomitant]

REACTIONS (2)
  - Platelet count decreased [None]
  - Rash pruritic [None]
